FAERS Safety Report 7881645-3 (Version None)
Quarter: 2011Q4

REPORT INFORMATION
  Report Type: 
  Country: None (occurrence: None)
  Receive Date: 20111101
  Receipt Date: 20110524
  Transmission Date: 20120403
  Serious: No
  Sender: FDA-Public Use
  Company Number: US-AMGEN-USASP2011026931

PATIENT
  Sex: Female

DRUGS (3)
  1. ENBREL [Suspect]
     Indication: RHEUMATOID ARTHRITIS
     Dosage: 50 MG, QWK
     Dates: start: 19980101
  2. ENBREL [Suspect]
     Indication: OSTEOARTHRITIS
  3. TREXALL [Concomitant]

REACTIONS (5)
  - ARTHRALGIA [None]
  - RHEUMATOID ARTHRITIS [None]
  - INJECTION SITE PAIN [None]
  - FATIGUE [None]
  - INJECTION SITE HAEMATOMA [None]
